FAERS Safety Report 5693864-5 (Version None)
Quarter: 2008Q2

REPORT INFORMATION
  Report Type: 
  Country: None (occurrence: None)
  Receive Date: 20080403
  Receipt Date: 20080327
  Transmission Date: 20081010
  Serious: Yes (Other)
  Sender: FDA-Public Use
  Company Number: JP-PFIZER INC-2008028061

PATIENT
  Age: 68 Year
  Sex: Female

DRUGS (2)
  1. DETRUSITOL SR [Suspect]
     Indication: HYPERTONIC BLADDER
     Dosage: DAILY DOSE:4MG
     Route: 048
     Dates: start: 20080118, end: 20080218
  2. NOVORAPID [Concomitant]
     Route: 051

REACTIONS (1)
  - HEPATIC FUNCTION ABNORMAL [None]
